FAERS Safety Report 4847456-8 (Version None)
Quarter: 2005Q4

REPORT INFORMATION
  Report Type: 
  Country: None (occurrence: None)
  Receive Date: 20051207
  Receipt Date: 20051128
  Transmission Date: 20060501
  Serious: Yes (Hospitalization)
  Sender: FDA-Public Use
  Company Number: US-KINGPHARMUSA00001-K200501531

PATIENT
  Age: 83 Year
  Sex: Female

DRUGS (8)
  1. ALTACE [Suspect]
     Dosage: 2.5 MG, QD
     Route: 048
     Dates: end: 20050705
  2. ALDACTONE [Suspect]
     Dosage: 100 MG, QD
     Route: 048
     Dates: start: 20050601, end: 20050705
  3. PANTOZOL [Concomitant]
     Dosage: 20 MG, UNK
     Route: 048
  4. TOREM   /GFR/ [Concomitant]
     Dosage: 100 MG, UNK
     Route: 048
  5. MARCOUMAR [Concomitant]
     Dosage: UNK, PRN
     Route: 048
  6. NORVASC [Concomitant]
     Dosage: 8 MG, UNK
     Route: 048
  7. ISOPTIN [Concomitant]
     Dosage: 160 MG, UNK
     Route: 048
  8. DIGOXIN [Concomitant]
     Dosage: .1 MG, UNK
     Route: 048

REACTIONS (8)
  - ASTHENIA [None]
  - BLOOD CREATININE INCREASED [None]
  - CARDIAC FAILURE [None]
  - EMPHYSEMA [None]
  - FLUID OVERLOAD [None]
  - HYPERKALAEMIA [None]
  - OEDEMA PERIPHERAL [None]
  - RENAL FAILURE CHRONIC [None]
